FAERS Safety Report 5188333-5 (Version None)
Quarter: 2006Q4

REPORT INFORMATION
  Report Type: 
  Country: None (occurrence: None)
  Receive Date: 20061221
  Receipt Date: 20061208
  Transmission Date: 20070319
  Serious: Yes (Other)
  Sender: FDA-Public Use
  Company Number: US-GLAXOSMITHKLINE-A0630888A

PATIENT
  Age: 22 Year
  Sex: Female

DRUGS (1)
  1. EQUATE NTS 21MG [Suspect]
     Dates: start: 20061205

REACTIONS (4)
  - APPLICATION SITE ERYTHEMA [None]
  - APPLICATION SITE PRURITUS [None]
  - DIZZINESS [None]
  - NAUSEA [None]
